FAERS Safety Report 9236348 (Version 1)
Quarter: 2013Q2

REPORT INFORMATION
  Report Type: Spontaneous
  Country: CH (occurrence: CH)
  Receive Date: 20130417
  Receipt Date: 20130417
  Transmission Date: 20140414
  Serious: Yes (Other)
  Sender: FDA-Public Use
  Company Number: CH-SANOFI-AVENTIS-2013SA038617

PATIENT
  Age: 3 Year
  Sex: Male

DRUGS (6)
  1. PREDNICARBATE [Suspect]
     Indication: DERMATITIS CONTACT
     Route: 065
     Dates: start: 20130401, end: 20130401
  2. PREDNICARBATE [Suspect]
     Indication: DERMATITIS CONTACT
     Route: 065
     Dates: start: 20130403, end: 20130403
  3. PREDNICARBATE [Suspect]
     Indication: DERMATITIS CONTACT
     Route: 065
     Dates: start: 20130404
  4. INSULIN [Concomitant]
     Indication: TYPE 1 DIABETES MELLITUS
     Dosage: DOSE:20 UNIT(S)
     Dates: end: 20130331
  5. INSULIN [Concomitant]
     Indication: TYPE 1 DIABETES MELLITUS
     Dosage: BASAL: 4.4 U/D, BOLI: 8.25 U/D
     Dates: start: 20130402, end: 20130402
  6. INSULIN [Concomitant]
     Indication: TYPE 1 DIABETES MELLITUS
     Dosage: BASAL: 4.15 U/D, BOLI:15.3 U/D
     Dates: start: 20130403, end: 20130403

REACTIONS (1)
  - Blood glucose fluctuation [Unknown]
